FAERS Safety Report 6511985-1 (Version None)
Quarter: 2009Q4

REPORT INFORMATION
  Report Type: 
  Country: None (occurrence: None)
  Receive Date: 20091222
  Receipt Date: 20090512
  Transmission Date: 20100525
  Serious: No
  Sender: FDA-Public Use
  Company Number: US-ASTRAZENECA-2009UW12310

PATIENT
  Age: 82 Year
  Sex: Female
  Weight: 61.7 kg

DRUGS (2)
  1. CRESTOR [Suspect]
     Route: 048
     Dates: end: 20090501
  2. CRESTOR [Suspect]
     Route: 048
     Dates: start: 20090502

REACTIONS (2)
  - MUSCLE TIGHTNESS [None]
  - MYALGIA [None]
